FAERS Safety Report 4631443-9 (Version None)
Quarter: 2005Q2

REPORT INFORMATION
  Report Type: 
  Country: None (occurrence: None)
  Receive Date: 20050407
  Receipt Date: 20050326
  Transmission Date: 20051028
  Serious: Yes (Other)
  Sender: FDA-Public Use
  Company Number: 2004107063

PATIENT
  Age: 85 Year
  Sex: Female

DRUGS (7)
  1. NEURONTIN [Suspect]
     Indication: SPINAL COLUMN STENOSIS
     Dosage: 300 MG (300 MG)
     Dates: start: 20040127
  2. ATORVASTATIN CALCIUM [Concomitant]
  3. IRBESARTAN [Concomitant]
  4. NITROGLYCERIN [Concomitant]
  5. FUROSEMIDE [Concomitant]
  6. INSULIN [Concomitant]
  7. GLIPIZIDE [Concomitant]

REACTIONS (3)
  - ACUTE MYOCARDIAL INFARCTION [None]
  - CARDIAC FAILURE CONGESTIVE [None]
  - CONDITION AGGRAVATED [None]
